FAERS Safety Report 7006057-6 (Version None)
Quarter: 2010Q3

REPORT INFORMATION
  Report Type: 
  Country: None (occurrence: None)
  Receive Date: 20100921
  Receipt Date: 20100907
  Transmission Date: 20110219
  Serious: Yes (Other)
  Sender: FDA-Public Use
  Company Number: ES-MYLANLABS-2010S1016398

PATIENT
  Age: 29 Year
  Sex: Male

DRUGS (9)
  1. DOXORUBICIN HCL [Suspect]
     Indication: HODGKIN'S DISEASE
     Dosage: 50ML (1.8 MG/ML) AS 30-MINUTE INFUSION
     Route: 041
  2. BLEOMYCIN SULFATE [Suspect]
     Indication: HODGKIN'S DISEASE
     Route: 042
  3. ETOPOSIDE [Suspect]
     Indication: HODGKIN'S DISEASE
     Route: 042
  4. CYCLOPHOSPHAMIDE [Suspect]
     Indication: HODGKIN'S DISEASE
     Route: 042
  5. VINCRISTINE [Suspect]
     Indication: HODGKIN'S DISEASE
     Route: 042
  6. PROCARBAZINE [Suspect]
     Indication: HODGKIN'S DISEASE
     Route: 042
  7. PREDNISONE [Suspect]
     Indication: HODGKIN'S DISEASE
     Route: 042
  8. DEXRAZOXANE [Suspect]
     Indication: EXTRAVASATION
     Dosage: INFUSION (DAY 1 AND 2); FIRST GIVEN 2.5H AFTER EXTRAVASATION
     Route: 065
  9. DEXRAZOXANE [Suspect]
     Dosage: INFUSION (DAY 3)
     Route: 065

REACTIONS (4)
  - BLOOD DISORDER [None]
  - EXTRAVASATION [None]
  - NAUSEA [None]
  - VOMITING [None]
